FAERS Safety Report 6092963-6 (Version None)
Quarter: 2009Q1

REPORT INFORMATION
  Report Type: 
  Country: None (occurrence: None)
  Receive Date: 20090224
  Receipt Date: 20090210
  Transmission Date: 20090719
  Serious: Yes (Death)
  Sender: FDA-Public Use
  Company Number: 2009-0004

PATIENT
  Age: 45 Year
  Sex: Female

DRUGS (2)
  1. PROZAC [Suspect]
  2. ALCOHOL [Concomitant]

REACTIONS (3)
  - BLOOD ALCOHOL INCREASED [None]
  - DRUG LEVEL INCREASED [None]
  - ROAD TRAFFIC ACCIDENT [None]
